FAERS Safety Report 10174055 (Version 1)
Quarter: 2014Q2

REPORT INFORMATION
  Report Type: Spontaneous
  Country: US (occurrence: None)
  Receive Date: 20140416
  Receipt Date: 20140416
  Transmission Date: 20141212
  Serious: Yes (Hospitalization)
  Sender: FDA-Public Use
  Company Number: 163-POMAL-13125087

PATIENT
  Age: 81 Year
  Sex: Female

DRUGS (6)
  1. POMALYST (POMALIDOMIDE) [Suspect]
     Indication: PLASMA CELL MYELOMA
     Route: 048
     Dates: start: 20131207
  2. CYMBALTA [Concomitant]
  3. DEXAMETHASONE [Concomitant]
  4. CARDIZEM (DILTIAZEM HYDROCHLORIDE) [Concomitant]
  5. VITAMIN D (ERGOCALCIFEROL) [Suspect]
  6. ARICEPT (DONEPEZIL HYDROCHLORIDE) [Concomitant]

REACTIONS (1)
  - Full blood count decreased [None]
